FAERS Safety Report 12901061 (Version 3)
Quarter: 2017Q1

REPORT INFORMATION
  Report Type: Spontaneous
  Country: US (occurrence: US)
  Receive Date: 20161101
  Receipt Date: 20170217
  Transmission Date: 20170428
  Serious: Yes (Death)
  Sender: FDA-Public Use
  Company Number: US-LUNDBECK-DKLU2021789

PATIENT
  Age: 82 Year
  Sex: Female

DRUGS (2)
  1. NORTHERA [Suspect]
     Active Substance: DROXIDOPA
     Dosage: TITRATION COMPLETE
     Route: 048
     Dates: start: 201506
  2. NORTHERA [Suspect]
     Active Substance: DROXIDOPA
     Indication: PARKINSON^S DISEASE
     Dosage: 300 MG/200 MG/100 MG
     Route: 048
     Dates: start: 201506, end: 20161023

REACTIONS (1)
  - Death [Fatal]

NARRATIVE: CASE EVENT DATE: 20161023
